FAERS Safety Report 20849496 (Version 1)
Quarter: 2022Q2

REPORT INFORMATION
  Report Type: Spontaneous
  Country: TW (occurrence: TW)
  Receive Date: 20220519
  Receipt Date: 20220519
  Transmission Date: 20220721
  Serious: Yes (Other)
  Sender: FDA-Public Use
  Company Number: TW-PFIZER INC-202200689971

PATIENT
  Age: 66 Year
  Sex: Female

DRUGS (2)
  1. PALBOCICLIB [Suspect]
     Active Substance: PALBOCICLIB
     Indication: Breast cancer
     Dosage: 125 MG, DAILY (DAY 1 TO DAY 21)
  2. LETROZOLE [Suspect]
     Active Substance: LETROZOLE
     Indication: Breast cancer
     Dosage: 2.5 MG (DAY 1 TO DAY 28 EVERY 4 WEEKS)

REACTIONS (3)
  - Neutropenia [Recovering/Resolving]
  - Cutaneous vasculitis [Recovering/Resolving]
  - Fixed eruption [Recovering/Resolving]
